FAERS Safety Report 5568686-6 (Version None)
Quarter: 2007Q4

REPORT INFORMATION
  Report Type: 
  Country: None (occurrence: None)
  Receive Date: 20071220
  Receipt Date: 20070912
  Transmission Date: 20080405
  Serious: No
  Sender: FDA-Public Use
  Company Number: A0578663A

PATIENT
  Age: 79 Year
  Sex: Male

DRUGS (1)
  1. AVODART [Suspect]
     Indication: BENIGN PROSTATIC HYPERPLASIA
     Dosage: .5MG PER DAY
     Route: 048
     Dates: end: 20051015

REACTIONS (5)
  - ABDOMINAL MASS [None]
  - BREAST ENLARGEMENT [None]
  - LIPOMA [None]
  - SKIN NODULE [None]
  - SUBCUTANEOUS NODULE [None]
